FAERS Safety Report 9454046 (Version 1)
Quarter: 2013Q3

REPORT INFORMATION
  Report Type: Spontaneous
  Country: ES (occurrence: ES)
  Receive Date: 20130812
  Receipt Date: 20130812
  Transmission Date: 20140515
  Serious: Yes (Death)
  Sender: FDA-Public Use
  Company Number: ES-CUBIST PHARMACEUTICAL, INC.-2013CBST000176

PATIENT
  Age: 54 Year
  Sex: Male

DRUGS (6)
  1. CUBICIN [Suspect]
     Indication: PRODUCT USED FOR UNKNOWN INDICATION
     Dosage: 500 MG, QD
     Route: 042
     Dates: start: 20120719, end: 20120824
  2. ISENTRESS [Suspect]
     Indication: HIV INFECTION
     Dosage: 800 MG, UNK
     Dates: start: 201108, end: 20120824
  3. KIVEXA [Suspect]
     Indication: HIV INFECTION
     Dosage: 1 DF, QD
     Route: 048
     Dates: start: 201108, end: 20120824
  4. PEG-INTRON [Suspect]
     Indication: HEPATITIS C
     Dosage: 100 ??G, QW
     Route: 058
     Dates: start: 20120712, end: 20120824
  5. REBETOL [Suspect]
     Indication: HEPATITIS C
     Dosage: 600 MG, BID
     Route: 048
     Dates: start: 20120712, end: 20120824
  6. BOCEPREVIR [Suspect]
     Indication: HEPATITIS C
     Dosage: 2400 MG, UNK
     Route: 048
     Dates: start: 20120712, end: 20120824

REACTIONS (1)
  - Lactic acidosis [Fatal]
